FAERS Safety Report 8834190 (Version 5)
Quarter: 2012Q4

REPORT INFORMATION
  Report Type: Report from Study
  Country: CH (occurrence: CH)
  Receive Date: 20121010
  Receipt Date: 20121226
  Transmission Date: 20130627
  Serious: Yes (Hospitalization)
  Sender: FDA-Public Use
  Company Number: CH-CELGENEUS-151-FK228-12100006

PATIENT
  Age: 77 Year
  Sex: Male

DRUGS (6)
  1. ROMIDEPSIN [Suspect]
     Indication: PERIPHERAL T-CELL LYMPHOMA UNSPECIFIED
     Route: 065
     Dates: start: 20120831, end: 20120914
  2. ROMIDEPSIN [Suspect]
     Route: 065
     Dates: start: 20121029
  3. ESOMEPRAZOLE [Concomitant]
     Indication: DRUG USE FOR UNKNOWN INDICATION
     Dosage: 40 Milligram
     Route: 065
  4. IBUPROFEN [Concomitant]
     Indication: DRUG USE FOR UNKNOWN INDICATION
     Route: 065
  5. COTRIMOXAZOLE [Concomitant]
     Indication: DRUG USE FOR UNKNOWN INDICATION
     Dosage: 800/160
     Route: 065
     Dates: start: 20120827
  6. ALLOPURINOL [Concomitant]
     Indication: DRUG USE FOR UNKNOWN INDICATION
     Dosage: 300 Milligram
     Route: 065

REACTIONS (5)
  - Stevens-Johnson syndrome [Recovered/Resolved]
  - Stomatitis [Recovered/Resolved]
  - Ageusia [Recovered/Resolved]
  - Dysgeusia [Recovered/Resolved]
  - Peripheral T-cell lymphoma unspecified [Not Recovered/Not Resolved]
